FAERS Safety Report 9504150 (Version 1)
Quarter: 2013Q3

REPORT INFORMATION
  Report Type: Spontaneous
  Country: US (occurrence: None)
  Receive Date: 20130905
  Receipt Date: 20130905
  Transmission Date: 20140515
  Serious: Yes (Hospitalization)
  Sender: FDA-Public Use
  Company Number: None

PATIENT
  Age: 63 Year
  Sex: Female

DRUGS (1)
  1. FORTEO [Suspect]
     Indication: OSTEOPOROSIS
     Route: 048
     Dates: start: 20130125, end: 20130602

REACTIONS (2)
  - Headache [None]
  - Hypertension [None]
